FAERS Safety Report 5813382-0 (Version None)
Quarter: 2008Q3

REPORT INFORMATION
  Report Type: 
  Country: None (occurrence: None)
  Receive Date: 20080716
  Receipt Date: 20080716
  Transmission Date: 20090109
  Serious: Yes (Hospitalization)
  Sender: FDA-Public Use
  Company Number: None

PATIENT
  Age: 72 Year
  Sex: Female

DRUGS (1)
  1. DIGOXIN [Suspect]
     Dosage: SEE ABOVE

REACTIONS (4)
  - ASTHENIA [None]
  - ATAXIA [None]
  - BRADYCARDIA [None]
  - THERAPEUTIC AGENT TOXICITY [None]
